FAERS Safety Report 8006874 (Version 4)
Quarter: 2012Q4

REPORT INFORMATION
  Report Type: Report from Study
  Country: US (occurrence: US)
  Receive Date: 20110623
  Receipt Date: 20121016
  Transmission Date: 20130627
  Serious: Yes (Hospitalization, Other)
  Sender: FDA-Public Use
  Company Number: US-JNJFOC-20110606532

PATIENT
  Age: 18 Year
  Sex: Female
  Weight: 64.2 kg

DRUGS (14)
  1. REMICADE [Suspect]
     Indication: INFLAMMATORY BOWEL DISEASE
     Route: 042
     Dates: start: 20060511
  2. REMICADE [Suspect]
     Indication: INFLAMMATORY BOWEL DISEASE
     Route: 042
     Dates: start: 20110418
  3. CITRACAL [Concomitant]
  4. PROBIOTICS [Concomitant]
  5. MULTIPLE VITAMIN [Concomitant]
  6. FOLIC ACID [Concomitant]
  7. ALBUTEROL [Concomitant]
     Route: 055
  8. FISH OIL [Concomitant]
  9. VITAMIN D [Concomitant]
  10. LACTOBACILLUS [Concomitant]
  11. 5-ASA [Concomitant]
  12. CULTURELLE [Concomitant]
  13. CIPRO [Concomitant]
  14. FLAGYL [Concomitant]

REACTIONS (1)
  - Rectal abscess [Recovered/Resolved]
